FAERS Safety Report 12142824 (Version 1)
Quarter: 2016Q1

REPORT INFORMATION
  Report Type: Spontaneous
  Country: US (occurrence: US)
  Receive Date: 20160303
  Receipt Date: 20160303
  Transmission Date: 20160526
  Serious: Yes (Hospitalization, Other)
  Sender: FDA-Public Use
  Company Number: US-AUROBINDO-AUR-APL-2014-00070

PATIENT

DRUGS (4)
  1. ACYCLOVIR SODIUM INJECTION 500 MG/10 ML [Suspect]
     Active Substance: ACYCLOVIR SODIUM
     Indication: ENCEPHALITIS VIRAL
  2. LABETALOL [Concomitant]
     Active Substance: LABETALOL\LABETALOL HYDROCHLORIDE
     Indication: BLOOD PRESSURE MEASUREMENT
     Route: 042
  3. ACYCLOVIR SODIUM INJECTION 500 MG/10 ML [Suspect]
     Active Substance: ACYCLOVIR SODIUM
     Indication: ENCEPHALITIS
     Dosage: 600 MG,TWO TIMES A DAY,
     Route: 042
  4. VALACYCLOVIR [Suspect]
     Active Substance: VALACYCLOVIR HYDROCHLORIDE
     Indication: HERPES ZOSTER
     Dosage: 1 G,3 TIMES A DAY,
     Route: 048

REACTIONS (19)
  - Hypertension [Recovered/Resolved]
  - Irritability [Recovered/Resolved]
  - Hallucination [Recovered/Resolved]
  - Unresponsive to stimuli [Recovered/Resolved]
  - Asthenia [Recovered/Resolved]
  - Hypertonia [Recovered/Resolved]
  - Disorientation [Recovered/Resolved]
  - Speech disorder [Recovered/Resolved]
  - Neurological decompensation [Recovered/Resolved]
  - Mental impairment [Recovered/Resolved]
  - Intercepted drug prescribing error [Recovered/Resolved]
  - Neurotoxicity [Recovered/Resolved]
  - Altered state of consciousness [Recovered/Resolved]
  - Somnolence [Recovered/Resolved]
  - Dizziness [Recovered/Resolved]
  - Restlessness [Recovered/Resolved]
  - Status epilepticus [Recovered/Resolved]
  - Hallucination, auditory [Recovered/Resolved]
  - Muscle contractions involuntary [Recovered/Resolved]
